FAERS Safety Report 5766868-1 (Version None)
Quarter: 2008Q2

REPORT INFORMATION
  Report Type: 
  Country: None (occurrence: None)
  Receive Date: 20080612
  Receipt Date: 20080612
  Transmission Date: 20081010
  Serious: Yes (Congenital Anomaly, Other)
  Sender: FDA-Public Use
  Company Number: GB-ABBOTT-08P-167-0441196-00

PATIENT
  Sex: Male
  Weight: 3.237 kg

DRUGS (3)
  1. EPILIM [Suspect]
     Indication: DRUG EXPOSURE DURING PREGNANCY
     Route: 064
  2. EPILIM [Suspect]
  3. LAMOTRIGINE [Concomitant]
     Indication: DRUG EXPOSURE DURING PREGNANCY

REACTIONS (19)
  - ABNORMAL BEHAVIOUR [None]
  - ANOMALY OF ORBIT, CONGENITAL [None]
  - AORTOGRAM ABNORMAL [None]
  - ARTHRITIS REACTIVE [None]
  - CONGENITAL AORTIC ANOMALY [None]
  - CONGENITAL HAIR DISORDER [None]
  - CONGENITAL NOSE MALFORMATION [None]
  - COUGH [None]
  - DRUG EXPOSURE DURING PREGNANCY [None]
  - DYSMORPHISM [None]
  - EAR MALFORMATION [None]
  - FEEDING DISORDER OF INFANCY OR EARLY CHILDHOOD [None]
  - FOETAL ANTICONVULSANT SYNDROME [None]
  - IRRITABILITY [None]
  - LARYNGOMALACIA [None]
  - LIP DISORDER [None]
  - RASH [None]
  - SPEECH DISORDER DEVELOPMENTAL [None]
  - VIRAL INFECTION [None]
